FAERS Safety Report 5307997-6 (Version None)
Quarter: 2007Q2

REPORT INFORMATION
  Report Type: 
  Country: None (occurrence: None)
  Receive Date: 20070426
  Receipt Date: 20070416
  Transmission Date: 20071010
  Serious: Yes (Hospitalization)
  Sender: FDA-Public Use
  Company Number: 2007CG00633

PATIENT
  Age: 49 Year
  Sex: Female
  Weight: 49 kg

DRUGS (2)
  1. SYMBICORT [Suspect]
     Indication: ASTHMA
     Dosage: 320/9 UG PER DOSE, ONE PUFF IN MORNING
     Route: 055
  2. NASONEX [Suspect]
     Dosage: ONE SPRAY IN MORNING
     Route: 045

REACTIONS (1)
  - ADRENAL INSUFFICIENCY [None]
